FAERS Safety Report 4505161-1 (Version None)
Quarter: 2004Q4

REPORT INFORMATION
  Report Type: 
  Country: None (occurrence: None)
  Receive Date: 20041018
  Receipt Date: 20040514
  Transmission Date: 20050328
  Serious: Yes (Hospitalization)
  Sender: FDA-Public Use
  Company Number: US_0405103068

PATIENT
  Age: 62 Year
  Sex: Female

DRUGS (9)
  1. CEFACLOR [Suspect]
     Indication: URINARY TRACT INFECTION
     Dates: start: 20040401
  2. LEXAPRO [Concomitant]
  3. DIGOXIN [Concomitant]
  4. LOSARTAN [Concomitant]
  5. ATENOLOL [Concomitant]
  6. MAXZIDE [Concomitant]
  7. OMEPRAZOLE [Concomitant]
  8. PERCOCET [Concomitant]
  9. DIAZEPAM [Concomitant]

REACTIONS (6)
  - DIARRHOEA [None]
  - DIVERTICULUM [None]
  - DRUG INTERACTION [None]
  - FATIGUE [None]
  - PYREXIA [None]
  - TONGUE DISCOLOURATION [None]
